FAERS Safety Report 8764086 (Version 1)
Quarter: 2012Q4

REPORT INFORMATION
  Report Type: 
  Country: US (occurrence: US)
  Receive Date: 20120831
  Receipt Date: 20120831
  Transmission Date: 20130627
  Serious: Yes (Other)
  Sender: FDA-Public Use
  Company Number: US-SANOFI-AVENTIS-2012SA060006

PATIENT
  Sex: Male
  Weight: 104 kg

DRUGS (2)
  1. PLAVIX [Suspect]
     Indication: STENT PLACEMENT
     Route: 048
  2. PLAVIX [Suspect]
     Indication: HEART ATTACK
     Route: 048

REACTIONS (3)
  - Fall [Unknown]
  - Haemorrhage [Unknown]
  - Haematoma [Unknown]
